FAERS Safety Report 13908850 (Version 1)
Quarter: 2017Q3

REPORT INFORMATION
  Report Type: Report from Study
  Country: None (occurrence: US)
  Receive Date: 20170828
  Receipt Date: 20170828
  Transmission Date: 20171127
  Serious: Yes (Hospitalization)
  Sender: FDA-Public Use
  Company Number: US-ABBVIE-17K-163-1914654-00

PATIENT
  Sex: Female

DRUGS (3)
  1. HUMIRA [Suspect]
     Active Substance: ADALIMUMAB
     Indication: PSORIASIS
     Dosage: DAY 1
     Route: 058
     Dates: start: 20170310, end: 20170310
  2. HUMIRA [Suspect]
     Active Substance: ADALIMUMAB
     Route: 058
     Dates: start: 20170311, end: 201705
  3. HUMIRA [Suspect]
     Active Substance: ADALIMUMAB
     Route: 058
     Dates: start: 20170804

REACTIONS (13)
  - Rash [Unknown]
  - Chronic obstructive pulmonary disease [Unknown]
  - Pruritus [Unknown]
  - Emotional distress [Unknown]
  - Anger [Unknown]
  - Nasopharyngitis [Unknown]
  - General physical condition abnormal [Unknown]
  - Pneumonia [Recovered/Resolved]
  - Lung infection [Unknown]
  - Pain of skin [Unknown]
  - Frustration tolerance decreased [Unknown]
  - Impaired quality of life [Unknown]
  - Helplessness [Unknown]

NARRATIVE: CASE EVENT DATE: 2017
